FAERS Safety Report 11091421 (Version 2)
Quarter: 2015Q2

REPORT INFORMATION
  Report Type: Spontaneous
  Country: GB (occurrence: GB)
  Receive Date: 20150505
  Receipt Date: 20150622
  Transmission Date: 20150821
  Serious: No
  Sender: FDA-Public Use
  Company Number: GB-JNJFOC-20150421608

PATIENT
  Sex: Female

DRUGS (2)
  1. DUROGESIC DTRANS [Suspect]
     Active Substance: FENTANYL
     Indication: FIBROMYALGIA
     Route: 062
     Dates: start: 200708
  2. DUROGESIC DTRANS [Suspect]
     Active Substance: FENTANYL
     Indication: BACK PAIN
     Route: 062
     Dates: start: 200708

REACTIONS (6)
  - Hyperhidrosis [Unknown]
  - Inappropriate schedule of drug administration [Unknown]
  - Wrong technique in drug usage process [Unknown]
  - Drug effect decreased [Unknown]
  - Product quality issue [Unknown]
  - Breakthrough pain [Unknown]
